FAERS Safety Report 25570738 (Version 1)
Quarter: 2025Q3

REPORT INFORMATION
  Report Type: Report from Study
  Country: EU (occurrence: EU)
  Receive Date: 20250717
  Receipt Date: 20250717
  Transmission Date: 20251020
  Serious: Yes (Other)
  Sender: TEVA
  Company Number: EU-TEVA-VS-3350450

PATIENT
  Sex: Male

DRUGS (3)
  1. PREDNISONE [Suspect]
     Active Substance: PREDNISONE
     Indication: Immunosuppressant drug therapy
     Route: 065
  2. VELUCOVACAP [Suspect]
     Active Substance: VELUCOVACAP
     Indication: COVID-19 immunisation
     Route: 065
  3. CANAKINUMAB [Suspect]
     Active Substance: CANAKINUMAB
     Indication: Immunosuppressant drug therapy
     Route: 065

REACTIONS (1)
  - VEXAS syndrome [Unknown]
